FAERS Safety Report 17326857 (Version 3)
Quarter: 2022Q1

REPORT INFORMATION
  Report Type: Spontaneous
  Country: US (occurrence: US)
  Receive Date: 20200127
  Receipt Date: 20220201
  Transmission Date: 20220423
  Serious: No
  Sender: FDA-Public Use
  Company Number: US-ABBVIE-19S-163-2692364-00

PATIENT
  Age: 87 Year
  Sex: Male

DRUGS (4)
  1. LUPRON [Suspect]
     Active Substance: LEUPROLIDE ACETATE
     Indication: Product used for unknown indication
     Route: 065
  2. XTANDI [Suspect]
     Active Substance: ENZALUTAMIDE
     Indication: Prostate cancer
     Route: 065
  3. XTANDI [Suspect]
     Active Substance: ENZALUTAMIDE
     Route: 065
  4. XTANDI [Suspect]
     Active Substance: ENZALUTAMIDE
     Route: 065
     Dates: start: 20200122

REACTIONS (6)
  - Blood testosterone decreased [Unknown]
  - Prostatic specific antigen decreased [Unknown]
  - Joint noise [Recovering/Resolving]
  - Hypoacusis [Unknown]
  - Osteoporosis [Unknown]
  - Hot flush [Unknown]

NARRATIVE: CASE EVENT DATE: 20200717
